FAERS Safety Report 7310094-1 (Version None)
Quarter: 2011Q1

REPORT INFORMATION
  Report Type: 
  Country: None (occurrence: None)
  Receive Date: 20110224
  Receipt Date: 20110128
  Transmission Date: 20110831
  Serious: No
  Sender: FDA-Public Use
  Company Number: US-B.I. PHARMACEUTICALS,INC./RIDGEFIELD-2010-BP-14524BP

PATIENT
  Age: 78 Year
  Sex: Male

DRUGS (3)
  1. HYDROCHLOROTHIAZIDE [Concomitant]
     Indication: HYPERTENSION
     Dosage: 12.5 MG
  2. PRADAXA [Suspect]
     Indication: ATRIAL FIBRILLATION
     Dosage: 300 MG
     Route: 048
     Dates: start: 20101101, end: 20101213
  3. BYSTOLIC [Concomitant]
     Indication: HYPERTENSION

REACTIONS (3)
  - INSOMNIA [None]
  - FREQUENT BOWEL MOVEMENTS [None]
  - NIGHTMARE [None]
